FAERS Safety Report 13902939 (Version 1)
Quarter: 2017Q3

REPORT INFORMATION
  Report Type: Spontaneous
  Country: DE (occurrence: DE)
  Receive Date: 20170824
  Receipt Date: 20170824
  Transmission Date: 20171127
  Serious: Yes (Other)
  Sender: FDA-Public Use
  Company Number: DE-TEVA-798119GER

PATIENT
  Sex: Female

DRUGS (1)
  1. DICLOFENAC-RATIOPHARM 50 MG ZAEPFCHEN [Suspect]
     Active Substance: DICLOFENAC
     Route: 054

REACTIONS (1)
  - Anuria [Unknown]
